FAERS Safety Report 7103216-9 (Version None)
Quarter: 2010Q4

REPORT INFORMATION
  Report Type: 
  Country: None (occurrence: None)
  Receive Date: 20101115
  Receipt Date: 20101104
  Transmission Date: 20110411
  Serious: Yes (Other)
  Sender: FDA-Public Use
  Company Number: DE-B.I. PHARMACEUTICALS,INC./RIDGEFIELD-2010-DE-06052DE

PATIENT
  Age: 39 Year
  Sex: Female

DRUGS (3)
  1. VIRAMUNE [Suspect]
     Indication: HIV INFECTION
     Dosage: 400 MG
     Dates: start: 19980512
  2. LAMIVUDINE [Concomitant]
     Indication: HIV INFECTION
     Dates: start: 19980512
  3. STAVUDINE [Concomitant]
     Indication: HIV INFECTION
     Dates: start: 19980512, end: 20061101

REACTIONS (1)
  - ABORTION SPONTANEOUS [None]
